FAERS Safety Report 23166662 (Version 1)
Quarter: 2023Q4

REPORT INFORMATION
  Report Type: Spontaneous
  Country: GB (occurrence: GB)
  Receive Date: 20231109
  Receipt Date: 20231109
  Transmission Date: 20240109
  Serious: Yes (Hospitalization, Other)
  Sender: FDA-Public Use
  Company Number: GB-AURINIA PHARMACEUTICALS INC.-AUR-004582

PATIENT

DRUGS (1)
  1. LUPKYNIS [Suspect]
     Active Substance: VOCLOSPORIN
     Indication: Lupus nephritis
     Dosage: UNK

REACTIONS (4)
  - Glomerular filtration rate decreased [Unknown]
  - Thrombotic microangiopathy [Unknown]
  - Platelet count decreased [Unknown]
  - Off label use [Unknown]
